FAERS Safety Report 8474799 (Version 3)
Quarter: 2015Q2

REPORT INFORMATION
  Report Type: Spontaneous
  Country: US (occurrence: US)
  Receive Date: 20120323
  Receipt Date: 20150622
  Transmission Date: 20150821
  Serious: Yes (Hospitalization)
  Sender: FDA-Public Use
  Company Number: US-MPIJNJ-2011-01375

PATIENT
  Age: 50 Year
  Sex: Female
  Weight: 56.69 kg

DRUGS (4)
  1. VELCADE [Suspect]
     Active Substance: BORTEZOMIB
     Indication: PLASMA CELL MYELOMA
     Dosage: 1.3 MG/M2, CYCLIC
     Route: 042
     Dates: start: 20100518, end: 20100723
  2. BACTRIM [Concomitant]
     Active Substance: SULFAMETHOXAZOLE\TRIMETHOPRIM
     Indication: CLOSTRIDIUM DIFFICILE COLITIS
     Dosage: UNK
  3. FLAGYL [Concomitant]
     Active Substance: METRONIDAZOLE\METRONIDAZOLE HYDROCHLORIDE
     Indication: CLOSTRIDIUM DIFFICILE COLITIS
     Dosage: UNK
  4. ROCEPHIN [Concomitant]
     Active Substance: CEFTRIAXONE SODIUM
     Indication: PRODUCT USED FOR UNKNOWN INDICATION
     Route: 042

REACTIONS (5)
  - Serratia sepsis [Recovered/Resolved]
  - Device related infection [Recovered/Resolved]
  - Febrile neutropenia [Recovered/Resolved]
  - Escherichia sepsis [Recovered/Resolved]
  - Clostridium difficile colitis [Recovered/Resolved]

NARRATIVE: CASE EVENT DATE: 20100723
